FAERS Safety Report 7956170-1 (Version None)
Quarter: 2011Q4

REPORT INFORMATION
  Report Type: 
  Country: None (occurrence: None)
  Receive Date: 20111205
  Receipt Date: 20111124
  Transmission Date: 20120403
  Serious: Yes (Hospitalization, Other)
  Sender: FDA-Public Use
  Company Number: PT-JNJFOC-20110205845

PATIENT
  Age: 28 Year
  Sex: Male

DRUGS (5)
  1. REMICADE [Suspect]
     Route: 042
     Dates: start: 20101123, end: 20101123
  2. IMURAN [Concomitant]
     Route: 065
  3. REMICADE [Suspect]
     Indication: CROHN'S DISEASE
     Dosage: 3 MORE INFUSIONS
     Route: 042
  4. REMICADE [Suspect]
     Route: 042
     Dates: start: 20060101, end: 20101123
  5. FLAGYL [Concomitant]
     Route: 065

REACTIONS (1)
  - DISSEMINATED TUBERCULOSIS [None]
